FAERS Safety Report 25605261 (Version 2)
Quarter: 2025Q4

REPORT INFORMATION
  Report Type: Spontaneous
  Country: US (occurrence: US)
  Receive Date: 20250725
  Receipt Date: 20251103
  Transmission Date: 20260117
  Serious: No
  Sender: ASTELLAS
  Company Number: US-ASTELLAS-2025-AER-039210

PATIENT
  Sex: Male

DRUGS (1)
  1. ENFORTUMAB VEDOTIN [Suspect]
     Active Substance: ENFORTUMAB VEDOTIN
     Indication: Bladder cancer
     Route: 065
     Dates: start: 202507

REACTIONS (3)
  - Infusion site irritation [Unknown]
  - Infusion site erythema [Unknown]
  - Infusion site streaking [Unknown]

NARRATIVE: CASE EVENT DATE: 20250711
